FAERS Safety Report 19940098 (Version 2)
Quarter: 2021Q4

REPORT INFORMATION
  Report Type: Spontaneous
  Country: US (occurrence: US)
  Receive Date: 20211011
  Receipt Date: 20211014
  Transmission Date: 20220304
  Serious: Yes (Hospitalization, Other)
  Sender: FDA-Public Use
  Company Number: US-PFIZER INC-202101030182

PATIENT
  Age: 51 Year
  Sex: Female

DRUGS (3)
  1. XANAX [Suspect]
     Active Substance: ALPRAZOLAM
     Dosage: UNK
     Dates: end: 20210803
  2. CAPECITABINE [Suspect]
     Active Substance: CAPECITABINE
     Dosage: UNK
     Dates: end: 202108
  3. TUKYSA [Suspect]
     Active Substance: TUCATINIB
     Indication: Breast cancer female
     Dosage: UNK
     Dates: end: 202108

REACTIONS (13)
  - Dehydration [Unknown]
  - Neuropathy peripheral [Unknown]
  - Oral pain [Unknown]
  - Cheilitis [Unknown]
  - Rhinorrhoea [Unknown]
  - Fatigue [Unknown]
  - Diarrhoea [Unknown]
  - Nausea [Unknown]
  - Vomiting [Unknown]
  - Stomatitis [Unknown]
  - Nasal disorder [Unknown]
  - Oropharyngeal pain [Unknown]
  - Eructation [Unknown]

NARRATIVE: CASE EVENT DATE: 20210801
